FAERS Safety Report 18479981 (Version 2)
Quarter: 2020Q4

REPORT INFORMATION
  Report Type: Other
  Country: IT (occurrence: IT)
  Receive Date: 20201109
  Receipt Date: 20201120
  Transmission Date: 20210114
  Serious: Yes (Hospitalization, Other)
  Sender: FDA-Public Use
  Company Number: IT-ROCHE-2707400

PATIENT
  Age: 65 Year
  Sex: Female

DRUGS (4)
  1. RITUXIMAB. [Suspect]
     Active Substance: RITUXIMAB
     Indication: GLOMERULONEPHRITIS MEMBRANOUS
     Dosage: FOUR CONSECUTIVE WEEKS
     Route: 041
     Dates: start: 201707
  2. ABACAVIR. [Concomitant]
     Active Substance: ABACAVIR
     Indication: HIV INFECTION
  3. EFAVIRENZ. [Concomitant]
     Active Substance: EFAVIRENZ
     Indication: HIV INFECTION
  4. LAMIVUDINE. [Concomitant]
     Active Substance: LAMIVUDINE
     Indication: HIV INFECTION

REACTIONS (7)
  - Intentional product use issue [Unknown]
  - Pneumonia bacterial [Recovered/Resolved]
  - CD4 lymphocytes decreased [Unknown]
  - Neutropenia [Recovered/Resolved]
  - CD8 lymphocytes decreased [Unknown]
  - Leukopenia [Unknown]
  - Off label use [Unknown]
